FAERS Safety Report 17236497 (Version 1)
Quarter: 2020Q1

REPORT INFORMATION
  Report Type: Spontaneous
  Country: US (occurrence: US)
  Receive Date: 20200106
  Receipt Date: 20200106
  Transmission Date: 20200409
  Serious: Yes (Life-Threatening)
  Sender: FDA-Public Use
  Company Number: NVSC2019US085231

PATIENT

DRUGS (1)
  1. EVEROLIMUS. [Suspect]
     Active Substance: EVEROLIMUS
     Indication: NON-HODGKIN^S LYMPHOMA RECURRENT
     Dosage: 10 MG, QD
     Route: 048

REACTIONS (2)
  - Hypertriglyceridaemia [Unknown]
  - Product use in unapproved indication [Unknown]
